FAERS Safety Report 6054521-9 (Version None)
Quarter: 2009Q1

REPORT INFORMATION
  Report Type: 
  Country: None (occurrence: None)
  Receive Date: 20090127
  Receipt Date: 20090120
  Transmission Date: 20090719
  Serious: Yes (Hospitalization, Other)
  Sender: FDA-Public Use
  Company Number: PHHY2009BR02355

PATIENT
  Age: 47 Year
  Sex: Female

DRUGS (17)
  1. RASILEZ [Suspect]
     Indication: HYPERTENSION
     Dosage: 1DF (300 MG) A DAY
     Route: 048
     Dates: start: 20080801, end: 20080901
  2. RASILEZ [Suspect]
     Indication: CORONARY ARTERY DISEASE
  3. ISORDIL [Concomitant]
     Indication: ANGINA PECTORIS
     Dosage: 5 MG, 1 DF/DAY
     Route: 060
  4. ZETSIM [Concomitant]
     Indication: BLOOD TRIGLYCERIDES
     Dosage: 10/20 MG, 1 DF AT DINNER
     Route: 048
  5. ZETSIM [Concomitant]
     Indication: BLOOD CHOLESTEROL
  6. ATENOLOL [Concomitant]
     Indication: BLOOD PRESSURE
     Dosage: 100 MG, 2 DF, QD
     Route: 048
     Dates: end: 20090119
  7. ATENOLOL [Concomitant]
     Indication: ANGINA PECTORIS
     Dosage: 100 MG, 1 + A HALF DF A DAY, TWICE A DAY
     Route: 048
     Dates: end: 20090119
  8. TORLOS [Concomitant]
     Indication: POLYURIA
     Dosage: 50 MG, 1 DF/DAY
     Route: 048
     Dates: end: 20090119
  9. TORLOS [Concomitant]
     Dosage: 50 MG, 2 DF/DAY
     Route: 048
     Dates: end: 20090119
  10. INDAPEN                                 /TUR/ [Concomitant]
     Indication: POLYURIA
     Dosage: 1.5 MG, 1 DF/DAY
     Route: 048
     Dates: end: 20090119
  11. RIVOTRIL [Concomitant]
     Indication: PANIC DISORDER
     Dosage: 0.5 MG, 1 DF AT NIGHT
     Route: 048
  12. ALTROX [Concomitant]
     Dosage: 0.25 MG, 1DF IN THE MORNING
     Route: 048
  13. LIORAM [Concomitant]
     Dosage: 10 MG, 1 DF AT NIGHT
     Route: 048
     Dates: start: 20090119
  14. MECLIN [Concomitant]
     Dosage: 1DF A DAY
     Route: 048
  15. CIMETIDINE [Concomitant]
     Dosage: 2 DF AT NIGHT
     Route: 048
     Dates: end: 20090118
  16. SELOSOK [Concomitant]
     Dosage: 100 MG
     Dates: start: 20090118
  17. DIOVAN HCT [Concomitant]
     Dosage: 320/12.5 MG

REACTIONS (7)
  - BLOOD PRESSURE INCREASED [None]
  - DRUG INEFFECTIVE [None]
  - GASTRITIS EROSIVE [None]
  - HEADACHE [None]
  - MUSCULAR WEAKNESS [None]
  - NASAL CONGESTION [None]
  - NAUSEA [None]
